FAERS Safety Report 10097121 (Version 3)
Quarter: 2015Q3

REPORT INFORMATION
  Report Type: Spontaneous
  Country: US (occurrence: US)
  Receive Date: 20140422
  Receipt Date: 20150813
  Transmission Date: 20151125
  Serious: No
  Sender: FDA-Public Use
  Company Number: US-GILEAD-2012-0065406

PATIENT
  Age: 47 Year
  Sex: Female

DRUGS (3)
  1. LETAIRIS [Suspect]
     Active Substance: AMBRISENTAN
     Indication: PULMONARY ARTERIAL HYPERTENSION
     Dosage: 5 MG, QD
     Route: 048
     Dates: start: 20121126
  2. EPOPROSTENOL. [Concomitant]
     Active Substance: EPOPROSTENOL
  3. EPOPROSTENOL. [Suspect]
     Active Substance: EPOPROSTENOL

REACTIONS (7)
  - Chest pain [Unknown]
  - Loss of consciousness [Unknown]
  - Unevaluable event [Unknown]
  - Nausea [Unknown]
  - Headache [Unknown]
  - Peripheral swelling [Unknown]
  - Dyspnoea [Unknown]
